FAERS Safety Report 5044307-6 (Version None)
Quarter: 2006Q3

REPORT INFORMATION
  Report Type: 
  Country: None (occurrence: None)
  Receive Date: 20060706
  Receipt Date: 20060703
  Transmission Date: 20061208
  Serious: Yes (Life-Threatening)
  Sender: FDA-Public Use
  Company Number: 2006CG01146

PATIENT
  Age: 71 Year
  Sex: Female

DRUGS (6)
  1. RHINOCORT [Suspect]
     Indication: NASAL POLYPS
     Route: 045
     Dates: start: 20060617, end: 20060617
  2. CLAMOXYL [Suspect]
     Route: 048
     Dates: start: 20060617, end: 20060617
  3. AVLOCARDYL [Concomitant]
     Route: 048
  4. AMLOR [Concomitant]
     Route: 048
  5. DIVARIUS [Concomitant]
     Route: 048
  6. TRANXENE [Concomitant]
     Route: 048

REACTIONS (9)
  - ANAPHYLACTIC SHOCK [None]
  - BLOOD CREATINE INCREASED [None]
  - DEHYDRATION [None]
  - DIARRHOEA [None]
  - HYPOTENSION [None]
  - LOSS OF CONSCIOUSNESS [None]
  - MALAISE [None]
  - PRURITUS [None]
  - TINNITUS [None]
